FAERS Safety Report 12640051 (Version 1)
Quarter: 2016Q3

REPORT INFORMATION
  Report Type: Spontaneous
  Country: US (occurrence: None)
  Receive Date: 20160809
  Receipt Date: 20160809
  Transmission Date: 20161109
  Serious: No
  Sender: FDA-Public Use
  Company Number: None

PATIENT

DRUGS (1)
  1. LEVOTHYROXINE 25MCG TABLET [Suspect]
     Active Substance: LEVOTHYROXINE
     Dosage: TAKEN ONE TABLE BY MOUTH DAILY
     Route: 048

REACTIONS (5)
  - Transcription medication error [None]
  - Blood thyroid stimulating hormone increased [None]
  - Drug dispensing error [None]
  - Accidental underdose [None]
  - Hypothyroidism [None]

NARRATIVE: CASE EVENT DATE: 2016
